FAERS Safety Report 8074023-8 (Version None)
Quarter: 2012Q1

REPORT INFORMATION
  Report Type: 
  Country: None (occurrence: None)
  Receive Date: 20120126
  Receipt Date: 20120124
  Transmission Date: 20120608
  Serious: Yes (Death)
  Sender: FDA-Public Use
  Company Number: IL-B.I. PHARMACEUTICALS,INC./RIDGEFIELD-2012-AP-00033RI

PATIENT
  Age: 80 Year
  Sex: Female

DRUGS (6)
  1. PRADAXA [Suspect]
     Dosage: 110 MG
     Route: 048
  2. OMEPRADEX [Concomitant]
     Indication: DYSPEPSIA
     Dosage: 20 MG
     Route: 048
  3. SPIRONOLACTONE [Concomitant]
     Indication: CARDIAC FAILURE CONGESTIVE
     Dosage: 25 MG
     Route: 048
  4. AMARYL [Concomitant]
     Indication: TYPE 2 DIABETES MELLITUS
     Dosage: 1 MG
     Route: 048
  5. FOSALAN [Concomitant]
     Indication: OSTEOPOROSIS
     Dosage: STRENGTH: 70/W
     Route: 048
  6. CARDILOC [Concomitant]
     Indication: ATRIAL FIBRILLATION
     Route: 048

REACTIONS (1)
  - GASTROINTESTINAL HAEMORRHAGE [None]
